FAERS Safety Report 16758283 (Version 2)
Quarter: 2019Q3

REPORT INFORMATION
  Report Type: Report from Study
  Country: IT (occurrence: IT)
  Receive Date: 20190830
  Receipt Date: 20190923
  Transmission Date: 20191005
  Serious: Yes (Hospitalization, Other)
  Sender: FDA-Public Use
  Company Number: IT-AUROBINDO-AUR-APL-2019-057181

PATIENT
  Age: 26 Year
  Sex: Male

DRUGS (2)
  1. ZOLPIDEM [Suspect]
     Active Substance: ZOLPIDEM TARTRATE
     Indication: PRODUCT USED FOR UNKNOWN INDICATION
     Dosage: UNK, MEAN DAILY DOSE OF 600 MG (DIAZEPAM-EQUIVALENTS DOSE: 380 MG)
     Route: 065
  2. TRIAZOLAM. [Suspect]
     Active Substance: TRIAZOLAM
     Indication: PRODUCT USED FOR UNKNOWN INDICATION
     Dosage: 4 MILLIGRAM, DAILY  MEAN DAILY DOSE OF 4 MG
     Route: 065

REACTIONS (6)
  - Alanine aminotransferase increased [Unknown]
  - Intentional overdose [Unknown]
  - Gamma-glutamyltransferase increased [Unknown]
  - Drug abuse [Unknown]
  - Drug dependence [Unknown]
  - Hypertransaminasaemia [Unknown]
